FAERS Safety Report 10162018 (Version 1)
Quarter: 2014Q2

REPORT INFORMATION
  Report Type: Spontaneous
  Country: US (occurrence: None)
  Receive Date: 20140508
  Receipt Date: 20140508
  Transmission Date: 20141212
  Serious: Yes (Hospitalization)
  Sender: FDA-Public Use
  Company Number: 2014P1001141

PATIENT
  Sex: Male

DRUGS (1)
  1. AMPHETAMINE SALTS [Suspect]

REACTIONS (7)
  - Fatigue [None]
  - Headache [None]
  - Malaise [None]
  - Hypertension [None]
  - Stress [None]
  - Feeling abnormal [None]
  - Product quality issue [None]
